FAERS Safety Report 5160040-4 (Version None)
Quarter: 2006Q4

REPORT INFORMATION
  Report Type: 
  Country: None (occurrence: None)
  Receive Date: 20061129
  Receipt Date: 20060731
  Transmission Date: 20070319
  Serious: No
  Sender: FDA-Public Use
  Company Number: US-GLAXOSMITHKLINE-A0614187A

PATIENT
  Age: 42 Year
  Sex: Female

DRUGS (4)
  1. WELLBUTRIN SR [Suspect]
     Dosage: 200MG TWICE PER DAY
     Route: 048
     Dates: start: 20030101
  2. OXYCONTIN [Concomitant]
  3. METHADONE HCL [Concomitant]
  4. VALIUM [Concomitant]

REACTIONS (2)
  - ARTHRALGIA [None]
  - NECK PAIN [None]
